FAERS Safety Report 11233732 (Version 1)
Quarter: 2015Q3

REPORT INFORMATION
  Report Type: Spontaneous
  Country: JP (occurrence: JP)
  Receive Date: 20150702
  Receipt Date: 20150702
  Transmission Date: 20151125
  Serious: Yes (Other)
  Sender: FDA-Public Use
  Company Number: JP-ROCHE-1602479

PATIENT
  Age: 12 Year
  Sex: Male

DRUGS (3)
  1. AVASTIN [Suspect]
     Active Substance: BEVACIZUMAB
     Indication: ANAPLASTIC ASTROCYTOMA
     Route: 041
     Dates: start: 20140512, end: 20141027
  2. CISPLATIN. [Concomitant]
     Active Substance: CISPLATIN
     Indication: ANAPLASTIC ASTROCYTOMA
     Dosage: DOSAGE IS UNCERTAIN.
     Route: 041
  3. ONCOVIN [Concomitant]
     Active Substance: VINCRISTINE SULFATE
     Indication: ANAPLASTIC ASTROCYTOMA
     Dosage: DOSAGE IS UNCERTAIN.
     Route: 042

REACTIONS (3)
  - Hypertension [Unknown]
  - Cerebral infarction [Recovered/Resolved with Sequelae]
  - Leukoencephalopathy [Recovered/Resolved with Sequelae]

NARRATIVE: CASE EVENT DATE: 20141103
